FAERS Safety Report 22608522 (Version 1)
Quarter: 2023Q2

REPORT INFORMATION
  Report Type: Spontaneous
  Country: BR (occurrence: BR)
  Receive Date: 20230616
  Receipt Date: 20230616
  Transmission Date: 20230721
  Serious: Yes (Other)
  Sender: FDA-Public Use
  Company Number: BR-ABBVIE-5293533

PATIENT
  Age: 71 Year
  Sex: Female
  Weight: 67 kg

DRUGS (4)
  1. HUMIRA [Suspect]
     Active Substance: ADALIMUMAB
     Indication: Rheumatoid arthritis
     Dosage: FREQUENCY TEXT: EVERY 14/15 DAYS
     Route: 058
     Dates: start: 2018, end: 202210
  2. INVESTIGATIONAL PRODUCT [Suspect]
     Active Substance: INVESTIGATIONAL PRODUCT
     Indication: COVID-19 immunisation
     Dosage: TWO DOSES (FIRST AND SECOND DOSE)
     Route: 030
  3. PREDNISOLONE [Suspect]
     Active Substance: PREDNISOLONE
     Indication: Antiinflammatory therapy
     Dosage: 2 TABLET?STOP DATE TEXT: ON JUNE 7TH OR 8TH
     Route: 048
     Dates: start: 20230605
  4. ASTRAZENECA COVID-19 VACCINE [Suspect]
     Active Substance: AZD-1222
     Indication: COVID-19 immunisation
     Dosage: ONE DOSE (THIRD DOSE)
     Route: 030

REACTIONS (13)
  - Gait inability [Recovered/Resolved]
  - Giardiasis [Recovered/Resolved]
  - Joint swelling [Not Recovered/Not Resolved]
  - Abdominal distension [Recovered/Resolved]
  - Rheumatoid arthritis [Not Recovered/Not Resolved]
  - Infarction [Unknown]
  - Cardiac disorder [Unknown]
  - Abdominal distension [Unknown]
  - Pain [Not Recovered/Not Resolved]
  - Rheumatoid arthritis [Unknown]
  - Peripheral swelling [Not Recovered/Not Resolved]
  - Drug ineffective [Unknown]
  - Vaccine interaction [Unknown]

NARRATIVE: CASE EVENT DATE: 20211001
